FAERS Safety Report 16719599 (Version 2)
Quarter: 2019Q3

REPORT INFORMATION
  Report Type: Spontaneous
  Country: IS (occurrence: IS)
  Receive Date: 20190820
  Receipt Date: 20190905
  Transmission Date: 20191005
  Serious: Yes (Hospitalization)
  Sender: FDA-Public Use
  Company Number: IS-TEVA-2019-IS-1095871

PATIENT
  Age: 67 Year
  Sex: Female

DRUGS (7)
  1. OXYCODONE [Suspect]
     Active Substance: OXYCODONE
     Indication: PAIN
     Dosage: 40 MILLIGRAM DAILY;
     Route: 048
  2. CLOPIDOGREL [Concomitant]
     Active Substance: CLOPIDOGREL BISULFATE
  3. METOPROLOL. [Concomitant]
     Active Substance: METOPROLOL
  4. ACETYLCYSTEIN [Concomitant]
     Active Substance: ACETYLCYSTEINE
  5. OMEPRAZOL [Concomitant]
     Active Substance: OMEPRAZOLE
  6. DOXYCYCLINE. [Concomitant]
     Active Substance: DOXYCYCLINE
  7. AMITRIPTYLINE [Concomitant]
     Active Substance: AMITRIPTYLINE

REACTIONS (7)
  - Toxicity to various agents [Recovering/Resolving]
  - Unresponsive to stimuli [Recovering/Resolving]
  - Dysarthria [Recovering/Resolving]
  - Stupor [Recovering/Resolving]
  - Blood pressure decreased [Recovering/Resolving]
  - Sleep disorder [Recovering/Resolving]
  - Respiratory rate decreased [Recovering/Resolving]
